APPROVED DRUG PRODUCT: DIPENTUM
Active Ingredient: OLSALAZINE SODIUM
Strength: 250MG
Dosage Form/Route: CAPSULE;ORAL
Application: N019715 | Product #001
Applicant: MYLAN SPECIALTY LP A VIATRIS CO
Approved: Jul 31, 1990 | RLD: Yes | RS: Yes | Type: RX